FAERS Safety Report 21865224 (Version 1)
Quarter: 2023Q1

REPORT INFORMATION
  Report Type: Spontaneous
  Country: CA (occurrence: CA)
  Receive Date: 20230116
  Receipt Date: 20230116
  Transmission Date: 20230417
  Serious: Yes (Other)
  Sender: FDA-Public Use
  Company Number: CA-SAMSUNG BIOEPIS-SB-2023-00517

PATIENT
  Age: 50 Year
  Sex: Female
  Weight: 62 kg

DRUGS (1)
  1. INFLIXIMAB [Suspect]
     Active Substance: INFLIXIMAB
     Indication: Colitis ulcerative
     Route: 042

REACTIONS (7)
  - Haemorrhoids [Unknown]
  - Musculoskeletal pain [Unknown]
  - Palatal ulcer [Unknown]
  - Sciatica [Unknown]
  - Tongue ulceration [Unknown]
  - Intentional product use issue [Unknown]
  - Off label use [Unknown]
